FAERS Safety Report 9454036 (Version 1)
Quarter: 2013Q3

REPORT INFORMATION
  Report Type: Spontaneous
  Country: CH (occurrence: CH)
  Receive Date: 20130812
  Receipt Date: 20130812
  Transmission Date: 20140515
  Serious: Yes (Hospitalization)
  Sender: FDA-Public Use
  Company Number: CH-TEVA-422461ISR

PATIENT
  Age: 88 Year
  Sex: Female
  Weight: 58.7 kg

DRUGS (8)
  1. ENALAPRIL [Suspect]
     Dosage: 20 MILLIGRAM DAILY; START DATE UNKNOWN
     Route: 048
  2. SINTROM 1 MITIS [Suspect]
     Dosage: ACCORDING TO SCHEME, START DATE UNKNOWN
     Route: 048
     Dates: end: 20130615
  3. TORASEMIDE [Suspect]
     Dosage: 30 MILLIGRAM DAILY; INITIAL DOSE REGIMEN 2-1-0-0, REDUCED TO 1-1-0-0, START DATE UNKNOWN
     Route: 048
  4. ISOPTIN [Concomitant]
     Dosage: 240 MILLIGRAM DAILY;
     Route: 048
  5. CARDURA [Concomitant]
     Dosage: 4 MILLIGRAM DAILY;
     Route: 048
  6. NITRODERM [Concomitant]
     Dosage: 10 MILLIGRAM DAILY; FROM 08:00 HRS TO 20:00 HRS, CONTINUING
     Route: 062
  7. PANTOZOL [Concomitant]
     Dosage: 40 MILLIGRAM DAILY;
     Route: 048
  8. LEXOTANIL [Concomitant]
     Dosage: 1.5 MILLIGRAM DAILY;
     Route: 048

REACTIONS (3)
  - Gastrointestinal haemorrhage [Unknown]
  - Anaemia [Recovering/Resolving]
  - Hyponatraemia [Recovered/Resolved]
